FAERS Safety Report 7205870-X (Version None)
Quarter: 2010Q4

REPORT INFORMATION
  Report Type: 
  Country: None (occurrence: None)
  Receive Date: 20101231
  Receipt Date: 20101217
  Transmission Date: 20110411
  Serious: Yes (Death, Hospitalization)
  Sender: FDA-Public Use
  Company Number: US-CELGENEUS-163-21880-10062637

PATIENT
  Sex: Female

DRUGS (6)
  1. REVLIMID [Suspect]
     Indication: MYELODYSPLASTIC SYNDROME
     Route: 048
     Dates: start: 20100501, end: 20100510
  2. REVLIMID [Suspect]
     Route: 048
     Dates: start: 20070807
  3. TRANSFUSION [Concomitant]
     Route: 051
     Dates: start: 20100601, end: 20100601
  4. LOVENOX [Concomitant]
     Route: 058
  5. MACROBID [Concomitant]
     Route: 048
  6. LASIX [Concomitant]
     Dosage: 80 MG IN THE AM, 40 MG IN PM
     Route: 048

REACTIONS (3)
  - CARDIAC FAILURE CONGESTIVE [None]
  - CHEST PAIN [None]
  - RESPIRATORY FAILURE [None]
